FAERS Safety Report 5941894-8 (Version None)
Quarter: 2008Q4

REPORT INFORMATION
  Report Type: 
  Country: None (occurrence: None)
  Receive Date: 20081104
  Receipt Date: 20081104
  Transmission Date: 20090506
  Serious: No
  Sender: FDA-Public Use
  Company Number: None

PATIENT
  Age: 49 Year
  Sex: Female

DRUGS (5)
  1. TRAZODONE HCL [Suspect]
     Indication: ANXIETY
     Dosage: 200 MG BID PO
     Route: 048
     Dates: start: 20080702, end: 20081030
  2. TRAZODONE HCL [Suspect]
     Indication: INSOMNIA
     Dosage: 200 MG BID PO
     Route: 048
     Dates: start: 20080702, end: 20081030
  3. ABILIFY [Concomitant]
  4. DIPHENHYDRAMINE HCL [Concomitant]
  5. LEVOTHYROXINE SODIUM [Concomitant]

REACTIONS (2)
  - DRUG EFFECT DECREASED [None]
  - PRODUCT QUALITY ISSUE [None]
